FAERS Safety Report 9366586 (Version 2)
Quarter: 2014Q2

REPORT INFORMATION
  Report Type: Spontaneous
  Country: BE (occurrence: BE)
  Receive Date: 20130625
  Receipt Date: 20140407
  Transmission Date: 20141212
  Serious: Yes (Other)
  Sender: FDA-Public Use
  Company Number: BE-GILEAD-2013-0077746

PATIENT
  Age: 35 Year
  Sex: Male

DRUGS (2)
  1. VIREAD [Suspect]
     Indication: HIV INFECTION
     Route: 065
  2. VIREAD [Suspect]
     Indication: HEPATITIS C

REACTIONS (2)
  - Osteoporosis [Unknown]
  - Femur fracture [Unknown]
